FAERS Safety Report 24049165 (Version 3)
Quarter: 2025Q1

REPORT INFORMATION
  Report Type: Spontaneous
  Country: US (occurrence: US)
  Receive Date: 20240704
  Receipt Date: 20250303
  Transmission Date: 20250408
  Serious: Yes (Disabling, Other)
  Sender: AMGEN
  Company Number: US-AMGEN-USASP2024127658

PATIENT
  Sex: Female

DRUGS (27)
  1. TEPEZZA [Suspect]
     Active Substance: TEPROTUMUMAB-TRBW
     Indication: Graves^ disease
     Route: 042
     Dates: start: 20220627, end: 202209
  2. TEPEZZA [Suspect]
     Active Substance: TEPROTUMUMAB-TRBW
     Indication: Endocrine ophthalmopathy
  3. COSOPT [Concomitant]
     Active Substance: DORZOLAMIDE HYDROCHLORIDE\TIMOLOL MALEATE
     Indication: Glaucoma
     Dosage: UNK UNK, BID
     Route: 047
  4. ALBUTEROL SULFATE [Concomitant]
     Active Substance: ALBUTEROL SULFATE
  5. FUROSEMIDE [Concomitant]
     Active Substance: FUROSEMIDE
     Route: 048
  6. HYDROXYZINE HYDROCHLORIDE [Concomitant]
     Active Substance: HYDROXYZINE HYDROCHLORIDE
     Route: 048
  7. INSULIN LISPRO [Concomitant]
     Active Substance: INSULIN LISPRO
  8. LANSOPRAZOLE [Concomitant]
     Active Substance: LANSOPRAZOLE
  9. LEVOTHYROXINE SODIUM [Concomitant]
     Active Substance: LEVOTHYROXINE SODIUM
     Route: 048
  10. LEVOTHYROXINE SODIUM [Concomitant]
     Active Substance: LEVOTHYROXINE SODIUM
     Route: 048
  11. LEVOTHYROXINE SODIUM [Concomitant]
     Active Substance: LEVOTHYROXINE SODIUM
     Route: 048
  12. LINZESS [Concomitant]
     Active Substance: LINACLOTIDE
     Route: 048
  13. MELOXICAM [Concomitant]
     Active Substance: MELOXICAM
     Route: 048
  14. MIRTAZAPINE [Concomitant]
     Active Substance: MIRTAZAPINE
     Route: 048
  15. OMEPRAZOLE [Concomitant]
     Active Substance: OMEPRAZOLE
  16. OXYCODONE HYDROCHLORIDE [Concomitant]
     Active Substance: OXYCODONE HYDROCHLORIDE
     Route: 048
  17. PRAVASTATIN SODIUM [Concomitant]
     Active Substance: PRAVASTATIN SODIUM
     Route: 048
  18. PREGABALIN [Concomitant]
     Active Substance: PREGABALIN
  19. VRAYLAR [Concomitant]
     Active Substance: CARIPRAZINE
  20. VRAYLAR [Concomitant]
     Active Substance: CARIPRAZINE
  21. IBUPROFEN [Concomitant]
     Active Substance: IBUPROFEN
  22. BENZTROPINE MESYLATE [Concomitant]
     Active Substance: BENZTROPINE MESYLATE
     Route: 048
  23. Artificial tears [Concomitant]
  24. TERBINAFINE [Concomitant]
     Active Substance: TERBINAFINE
     Route: 048
  25. PHENYLEPHRINE [Concomitant]
     Active Substance: PHENYLEPHRINE
  26. PROPARACAINE [Concomitant]
     Active Substance: PROPARACAINE
  27. TROPICAMIDE [Concomitant]
     Active Substance: TROPICAMIDE

REACTIONS (11)
  - Deafness neurosensory [Not Recovered/Not Resolved]
  - Graves^ disease [Unknown]
  - Physical disability [Unknown]
  - Injury [Unknown]
  - Anxiety [Unknown]
  - Anhedonia [Unknown]
  - Discomfort [Unknown]
  - Tinnitus [Not Recovered/Not Resolved]
  - Emotional distress [Unknown]
  - Pain [Unknown]
  - Product use complaint [Unknown]
